FAERS Safety Report 19576773 (Version 1)
Quarter: 2021Q3

REPORT INFORMATION
  Report Type: Spontaneous
  Country: JP (occurrence: JP)
  Receive Date: 20210719
  Receipt Date: 20210719
  Transmission Date: 20211014
  Serious: Yes (Hospitalization, Other)
  Sender: FDA-Public Use
  Company Number: JP-TEVA-2021-JP-003449J

PATIENT
  Age: 53 Year
  Sex: Male

DRUGS (1)
  1. FENOFIBRATE TABLET 80MG  ^TAKEDA TEVA^ [Suspect]
     Active Substance: FENOFIBRATE
     Indication: PRODUCT USED FOR UNKNOWN INDICATION
     Route: 065
     Dates: start: 202003, end: 202005

REACTIONS (1)
  - Drug-induced liver injury [Unknown]
